FAERS Safety Report 8595328-8 (Version None)
Quarter: 2012Q3

REPORT INFORMATION
  Report Type: 
  Country: None (occurrence: None)
  Receive Date: 20120815
  Receipt Date: 20120810
  Transmission Date: 20120928
  Serious: Yes (Other)
  Sender: FDA-Public Use
  Company Number: PHHY2012JP068974

PATIENT
  Age: 72 Year
  Sex: Male

DRUGS (1)
  1. ZOMETA [Suspect]
     Indication: METASTASES TO BONE
     Dosage: 4MG (PER ADMINISTATION)
     Route: 041
     Dates: start: 20090201, end: 20111001

REACTIONS (4)
  - HYPERAESTHESIA [None]
  - OSTEONECROSIS OF JAW [None]
  - DENTAL CARIES [None]
  - CELLULITIS [None]
